FAERS Safety Report 6508275-X (Version None)
Quarter: 2009Q4

REPORT INFORMATION
  Report Type: 
  Country: None (occurrence: None)
  Receive Date: 20091221
  Receipt Date: 20090210
  Transmission Date: 20100525
  Serious: No
  Sender: FDA-Public Use
  Company Number: US-ASTRAZENECA-2008UW22537

PATIENT
  Sex: Female

DRUGS (2)
  1. CRESTOR [Suspect]
     Route: 048
  2. ZETIA [Suspect]

REACTIONS (2)
  - DRUG INEFFECTIVE [None]
  - JOINT SWELLING [None]
